FAERS Safety Report 13009876 (Version 1)
Quarter: 2016Q4

REPORT INFORMATION
  Report Type: Spontaneous
  Country: DE (occurrence: DE)
  Receive Date: 20161208
  Receipt Date: 20161208
  Transmission Date: 20170207
  Serious: Yes (Life-Threatening, Hospitalization)
  Sender: FDA-Public Use
  Company Number: DE-PFIZER INC-2016565303

PATIENT
  Age: 35 Year
  Sex: Female
  Weight: 57 kg

DRUGS (1)
  1. IBUPROFEN. [Suspect]
     Active Substance: IBUPROFEN
     Indication: ANAL FISSURE
     Dosage: 600 MG, 2-3 X DAILY
     Route: 048
     Dates: start: 20160905, end: 20160930

REACTIONS (1)
  - Subacute hepatic failure [Recovering/Resolving]

NARRATIVE: CASE EVENT DATE: 20161120
